FAERS Safety Report 20657191 (Version 1)
Quarter: 2022Q1

REPORT INFORMATION
  Report Type: Spontaneous
  Country: FR (occurrence: FR)
  Receive Date: 20220331
  Receipt Date: 20220331
  Transmission Date: 20220423
  Serious: Yes (Other)
  Sender: FDA-Public Use
  Company Number: FR-NOVARTISPH-NVSC2022FR062478

PATIENT
  Sex: Female
  Weight: 61 kg

DRUGS (2)
  1. ENTRESTO [Suspect]
     Active Substance: SACUBITRIL\VALSARTAN
     Indication: Restrictive cardiomyopathy
     Dosage: 50 MG, BID (24MG/26MG) (STOPPED: AROUND 15 FEB 2022)
     Route: 065
     Dates: start: 20220126, end: 202202
  2. ENTRESTO [Suspect]
     Active Substance: SACUBITRIL\VALSARTAN
     Indication: Ejection fraction
     Dosage: 100 MG, BID (49MG/51MG )
     Route: 048
     Dates: start: 20220217, end: 20220310

REACTIONS (4)
  - Angioedema [Recovering/Resolving]
  - Swelling [Unknown]
  - Diarrhoea [Unknown]
  - Product use in unapproved indication [Unknown]

NARRATIVE: CASE EVENT DATE: 20220201
